FAERS Safety Report 19211107 (Version 1)
Quarter: 2021Q2

REPORT INFORMATION
  Report Type: Spontaneous
  Country: FR (occurrence: FR)
  Receive Date: 20210504
  Receipt Date: 20210504
  Transmission Date: 20210717
  Serious: Yes (Hospitalization)
  Sender: FDA-Public Use
  Company Number: FR-PFIZER INC-2021430481

PATIENT
  Age: 9 Year
  Sex: Male
  Weight: 60.9 kg

DRUGS (1)
  1. DOXORUBICIN HCL [Suspect]
     Active Substance: DOXORUBICIN HYDROCHLORIDE
     Indication: NEOPLASM MALIGNANT
     Dosage: 58.53 MG
     Route: 042
     Dates: start: 20201126

REACTIONS (2)
  - Extravasation [Not Recovered/Not Resolved]
  - Injection site abscess [Recovered/Resolved with Sequelae]

NARRATIVE: CASE EVENT DATE: 20201126
